FAERS Safety Report 7062837-2 (Version None)
Quarter: 2010Q4

REPORT INFORMATION
  Report Type: 
  Country: None (occurrence: None)
  Receive Date: 20101026
  Receipt Date: 20100204
  Transmission Date: 20110411
  Serious: No
  Sender: FDA-Public Use
  Company Number: US-PFIZER INC-2010016334

PATIENT
  Sex: Female
  Weight: 54.4 kg

DRUGS (3)
  1. LIPITOR [Suspect]
     Indication: BLOOD CHOLESTEROL INCREASED
     Dosage: 20 MG, 1X/DAY
     Route: 048
     Dates: start: 20090101, end: 20100101
  2. VALSARTAN [Concomitant]
     Indication: HYPERTENSION
     Dosage: UNK
  3. ACIPHEX [Concomitant]
     Dosage: 40 MG, UNK

REACTIONS (2)
  - BLOOD CHOLESTEROL INCREASED [None]
  - DRY MOUTH [None]
